FAERS Safety Report 5208781-4 (Version None)
Quarter: 2007Q1

REPORT INFORMATION
  Report Type: 
  Country: None (occurrence: None)
  Receive Date: 20070116
  Receipt Date: 20070111
  Transmission Date: 20070707
  Serious: Yes (Hospitalization, Congenital Anomaly, Other)
  Sender: FDA-Public Use
  Company Number: US-RB-004623-06

PATIENT
  Sex: Female

DRUGS (7)
  1. SUBUTEX [Suspect]
     Route: 060
     Dates: start: 20060707, end: 20061101
  2. SUBUTEX [Suspect]
     Route: 060
     Dates: start: 20050201, end: 20060707
  3. SUBUTEX [Suspect]
     Route: 060
     Dates: start: 20061101
  4. SUBOXONE [Suspect]
     Indication: DRUG USE FOR UNKNOWN INDICATION
     Dosage: UNKNOWN
     Dates: start: 20041201, end: 20050201
  5. ALBUTEROL [Concomitant]
  6. PRENATAL VITAMINS [Concomitant]
     Indication: PREGNANCY
  7. BIRTH CONTROL PILL [Concomitant]

REACTIONS (3)
  - ABORTION INDUCED [None]
  - DRUG EXPOSURE DURING PREGNANCY [None]
  - FOETAL CHROMOSOME ABNORMALITY [None]
